FAERS Safety Report 17122472 (Version 1)
Quarter: 2019Q4

REPORT INFORMATION
  Report Type: Spontaneous
  Country: US (occurrence: US)
  Receive Date: 20191206
  Receipt Date: 20191206
  Transmission Date: 20200122
  Serious: No
  Sender: FDA-Public Use
  Company Number: US-ROCHE-2276456

PATIENT
  Age: 35 Year
  Sex: Female

DRUGS (5)
  1. TAXOL [Concomitant]
     Active Substance: PACLITAXEL
  2. HERCEPTIN [Suspect]
     Active Substance: TRASTUZUMAB
     Indication: NEUROPATHY PERIPHERAL
  3. PERJETA [Suspect]
     Active Substance: PERTUZUMAB
     Indication: BREAST CANCER
     Dosage: 7TH INFUSION
     Route: 065
     Dates: start: 20190311
  4. HERCEPTIN [Suspect]
     Active Substance: TRASTUZUMAB
     Indication: BREAST CANCER
     Dosage: 7TH INFUSION
     Route: 042
     Dates: start: 20190311
  5. PERJETA [Suspect]
     Active Substance: PERTUZUMAB
     Indication: NEUROPATHY PERIPHERAL

REACTIONS (5)
  - White blood cell count decreased [Unknown]
  - Fatigue [Unknown]
  - Pruritus [Unknown]
  - Dry skin [Unknown]
  - Alopecia [Unknown]
